FAERS Safety Report 6669795-0 (Version None)
Quarter: 2010Q2

REPORT INFORMATION
  Report Type: 
  Country: None (occurrence: None)
  Receive Date: 20100402
  Receipt Date: 20100322
  Transmission Date: 20101027
  Serious: Yes (Death, Life-Threatening, Hospitalization, Disabling, Other)
  Sender: FDA-Public Use
  Company Number: A-CH2009-32085

PATIENT
  Age: 63 Year
  Sex: Male

DRUGS (7)
  1. ZAVESCA [Suspect]
     Indication: GAUCHER'S DISEASE
     Dosage: 100 MG, TID, ORAL
     Route: 048
     Dates: start: 20061006, end: 20091001
  2. PRAVASTATIN SODIUM [Concomitant]
  3. PANTAZOL (PANTOPRAZOLE SODIUM) [Concomitant]
  4. MONOCEDOCARD (ISOSORBIDE MONONITRATE) [Concomitant]
  5. BISOPROLOL FUMARATE [Concomitant]
  6. PANZYTRAT (PANCREATIN) [Concomitant]
  7. NOVOMIX (INSULIN ASPART PROTAMINE (CRYSTALLINE), INSULIN ASPART [Concomitant]

REACTIONS (6)
  - ABDOMINAL PAIN UPPER [None]
  - ADENOCARCINOMA PANCREAS [None]
  - CONSTIPATION [None]
  - FATIGUE [None]
  - JAUNDICE [None]
  - WEIGHT DECREASED [None]
